FAERS Safety Report 7379796-5 (Version None)
Quarter: 2011Q1

REPORT INFORMATION
  Report Type: 
  Country: None (occurrence: None)
  Receive Date: 20110318
  Receipt Date: 20101126
  Transmission Date: 20110831
  Serious: Yes (Hospitalization)
  Sender: FDA-Public Use
  Company Number: TRP_07601_2011

PATIENT
  Sex: Male
  Weight: 171.6 kg

DRUGS (6)
  1. ASPIRIN [Concomitant]
  2. ZOLIPDEM [Concomitant]
  3. ZOLPIDEM TARTRATE [Concomitant]
  4. MULTI-VITAMINS [Concomitant]
  5. RIBAPAK 400 MG (NOT SPECIFIED) [Suspect]
     Indication: HEPATITIS C
     Dosage: 400 MG BID, [WITH MEALS; STRENGTH ALSO NOTED AS 200 MG] ORAL
     Route: 048
     Dates: start: 20091201, end: 20101207
  6. INFERGEN [Suspect]
     Indication: HEPATITIS C
     Dosage: 15 ?G [0.5 ML] SUBCUTANEOUS
     Route: 058
     Dates: start: 20100607, end: 20101207

REACTIONS (14)
  - PLATELET COUNT DECREASED [None]
  - RHONCHI [None]
  - CONFUSIONAL STATE [None]
  - BRONCHITIS VIRAL [None]
  - PYREXIA [None]
  - OEDEMA [None]
  - GAIT DISTURBANCE [None]
  - CHILLS [None]
  - PNEUMONIA [None]
  - ANAEMIA [None]
  - CANDIDIASIS [None]
  - FATIGUE [None]
  - INJECTION SITE PAIN [None]
  - MENTAL STATUS CHANGES [None]
